FAERS Safety Report 7061758-9 (Version None)
Quarter: 2010Q4

REPORT INFORMATION
  Report Type: 
  Country: None (occurrence: None)
  Receive Date: 20101026
  Receipt Date: 20101014
  Transmission Date: 20110411
  Serious: Yes (Hospitalization)
  Sender: FDA-Public Use
  Company Number: US-ROCHE-734602

PATIENT
  Sex: Male

DRUGS (3)
  1. BEVACIZUMAB [Suspect]
     Dosage: LAST DOSE PRIOR TO SAE 04 OCTOBER 2010
     Route: 065
     Dates: start: 20100726
  2. IRINOTECAN HCL [Suspect]
     Dosage: LAST DOSE PRIOR TO SAE 04 OCTOBER 2010
     Route: 065
     Dates: start: 20100726
  3. CISPLATIN [Suspect]
     Dosage: LAST DOSE PRIOR TO SAE 04 OCTOBER 2010
     Route: 065
     Dates: start: 20100726

REACTIONS (2)
  - MUSCULOSKELETAL CHEST PAIN [None]
  - OESOPHAGITIS [None]
